FAERS Safety Report 23684788 (Version 1)
Quarter: 2024Q1

REPORT INFORMATION
  Report Type: Spontaneous
  Country: BE (occurrence: BE)
  Receive Date: 20240328
  Receipt Date: 20240328
  Transmission Date: 20240410
  Serious: Yes (Hospitalization, Other)
  Sender: FDA-Public Use
  Company Number: None

PATIENT
  Age: 73 Year
  Sex: Male

DRUGS (9)
  1. BECLOMETHASONE DIPROPIONATE [Suspect]
     Active Substance: BECLOMETHASONE DIPROPIONATE
     Indication: Colitis ulcerative
     Dosage: 5 MG BID
     Route: 061
     Dates: start: 2021
  2. BECLOMETHASONE DIPROPIONATE [Suspect]
     Active Substance: BECLOMETHASONE DIPROPIONATE
     Dosage: DEGRESSIVE DOSE
     Route: 061
     Dates: start: 2021
  3. INFLIXIMAB [Suspect]
     Active Substance: INFLIXIMAB
     Indication: Colitis ulcerative
     Dosage: 2 DOSES
     Route: 042
     Dates: start: 2021
  4. MYCOPHENOLATE MOFETIL [Suspect]
     Active Substance: MYCOPHENOLATE MOFETIL
     Dosage: HIGH DOSE
     Route: 048
     Dates: start: 2021
  5. MYCOPHENOLATE MOFETIL [Suspect]
     Active Substance: MYCOPHENOLATE MOFETIL
     Indication: Colitis ulcerative
     Dosage: 500 MG BID
     Route: 048
     Dates: start: 2021
  6. METHYLPREDNISOLONE [Suspect]
     Active Substance: METHYLPREDNISOLONE
     Dosage: HIGH-DOSE
     Route: 042
     Dates: start: 2021
  7. METHYLPREDNISOLONE [Suspect]
     Active Substance: METHYLPREDNISOLONE
     Indication: Colitis ulcerative
     Dosage: DOSE INCREASED
     Route: 042
     Dates: start: 2021
  8. METHYLPREDNISOLONE [Suspect]
     Active Substance: METHYLPREDNISOLONE
     Dosage: 64 MG
     Route: 048
     Dates: start: 2021
  9. METHYLPREDNISOLONE [Suspect]
     Active Substance: METHYLPREDNISOLONE
     Dosage: DEGRESSIVE DOSE
     Route: 042
     Dates: start: 2021

REACTIONS (6)
  - Cytomegalovirus infection reactivation [Recovering/Resolving]
  - Staphylococcal bacteraemia [Recovering/Resolving]
  - Bacterial sepsis [Recovering/Resolving]
  - Enterococcal infection [Recovering/Resolving]
  - Enterococcal bacteraemia [Recovering/Resolving]
  - Mononucleosis syndrome [Recovering/Resolving]

NARRATIVE: CASE EVENT DATE: 20210101
